FAERS Safety Report 8675906 (Version 2)
Quarter: 2012Q4

REPORT INFORMATION
  Report Type: 
  Country: US (occurrence: US)
  Receive Date: 20120720
  Receipt Date: 20120831
  Transmission Date: 20130627
  Serious: Yes (Hospitalization)
  Sender: FDA-Public Use
  Company Number: PHEH2012US013884

PATIENT
  Age: 28 Year
  Sex: Male
  Weight: 83.9 kg

DRUGS (2)
  1. COARTEM [Suspect]
     Indication: MALARIA
     Dosage: 20 mg artemether and 120 mg benflumetol/ 6 doses
     Route: 048
     Dates: start: 20111212, end: 20111214
  2. QUININE [Concomitant]
     Indication: MALARIA
     Dosage: 648 mg, Q8H
     Dates: start: 20111212

REACTIONS (10)
  - Haemolytic anaemia [Recovering/Resolving]
  - Haptoglobin decreased [Unknown]
  - Blood bilirubin increased [Unknown]
  - Blood lactate dehydrogenase increased [Unknown]
  - Toxicity to various agents [Unknown]
  - Protein total increased [Unknown]
  - Pancytopenia [Unknown]
  - Thrombocytopenia [Unknown]
  - Tremor [Unknown]
  - Drug ineffective [Unknown]
